FAERS Safety Report 18860084 (Version 1)
Quarter: 2021Q1

REPORT INFORMATION
  Report Type: Spontaneous
  Country: US (occurrence: US)
  Receive Date: 20210208
  Receipt Date: 20210208
  Transmission Date: 20210420
  Serious: No
  Sender: FDA-Public Use
  Company Number: None

PATIENT
  Age: 58 Year
  Sex: Female
  Weight: 81.8 kg

DRUGS (1)
  1. RITUXAN [Suspect]
     Active Substance: RITUXIMAB
     Indication: SYSTEMIC SCLERODERMA
     Dosage: ?          OTHER FREQUENCY:EVERY 14 DAYS;?
     Route: 041
     Dates: start: 20201112

REACTIONS (6)
  - Erythema [None]
  - Muscle spasms [None]
  - Flushing [None]
  - Throat irritation [None]
  - Hyperhidrosis [None]
  - Flatulence [None]

NARRATIVE: CASE EVENT DATE: 20201127
